FAERS Safety Report 5076227-5 (Version None)
Quarter: 2006Q3

REPORT INFORMATION
  Report Type: 
  Country: None (occurrence: None)
  Receive Date: 20060807
  Receipt Date: 20060724
  Transmission Date: 20061208
  Serious: Yes (Life-Threatening, Other)
  Sender: FDA-Public Use
  Company Number: AND_0380_2006

PATIENT
  Sex: Female

DRUGS (1)
  1. FORTAMET [Suspect]
     Dosage: 1000 MG ONCE PO
     Route: 048

REACTIONS (2)
  - FOREIGN BODY TRAUMA [None]
  - RESPIRATORY ARREST [None]
